FAERS Safety Report 23103629 (Version 1)
Quarter: 2023Q4

REPORT INFORMATION
  Report Type: Report from Study
  Country: US (occurrence: US)
  Receive Date: 20231025
  Receipt Date: 20231025
  Transmission Date: 20240110
  Serious: Yes (Other)
  Sender: FDA-Public Use
  Company Number: US-JNJFOC-20231054962

PATIENT

DRUGS (1)
  1. REMICADE [Suspect]
     Active Substance: INFLIXIMAB
     Indication: Inflammatory bowel disease
     Route: 041

REACTIONS (9)
  - Anaphylactic reaction [Unknown]
  - Lupus-like syndrome [Recovered/Resolved]
  - Infusion related reaction [Recovered/Resolved]
  - Transaminases abnormal [Recovered/Resolved]
  - Serum sickness [Recovered/Resolved]
  - Psoriasis [Unknown]
  - Therapeutic product effect decreased [Unknown]
  - Therapy non-responder [Unknown]
  - Off label use [Unknown]
